FAERS Safety Report 15403101 (Version 5)
Quarter: 2019Q2

REPORT INFORMATION
  Report Type: Report from Study
  Country: JP (occurrence: JP)
  Receive Date: 20180919
  Receipt Date: 20190621
  Transmission Date: 20190711
  Serious: Yes (Hospitalization)
  Sender: FDA-Public Use
  Company Number: PHJP2018JP016182

PATIENT
  Age: 58 Year
  Sex: Male

DRUGS (7)
  1. MIYA-BM [Concomitant]
     Active Substance: CLOSTRIDIUM BUTYRICUM SPORES STRAIN M-55
     Indication: COLITIS ULCERATIVE
     Dosage: 3 G, UNK
     Route: 048
     Dates: end: 201807
  2. TALION [Concomitant]
     Indication: COLITIS ULCERATIVE
     Dosage: 20 MG, UNK
     Route: 065
     Dates: end: 201807
  3. MARDUOX [Concomitant]
     Active Substance: BETAMETHASONE BUTYRATE PROPIONATE\MAXACALCITOL
     Indication: PUSTULAR PSORIASIS
     Dosage: 2 G, PRN
     Route: 061
     Dates: start: 20180418, end: 20180615
  4. MUCOSAL [Concomitant]
     Indication: COLITIS ULCERATIVE
     Dosage: 15 MG, UNK
     Route: 048
     Dates: end: 201807
  5. COSENTYX [Suspect]
     Active Substance: SECUKINUMAB
     Indication: PUSTULAR PSORIASIS
     Dosage: 300 MG, QW
     Route: 058
     Dates: start: 20180518, end: 20180615
  6. MARDUOX [Concomitant]
     Active Substance: BETAMETHASONE BUTYRATE PROPIONATE\MAXACALCITOL
     Indication: INFLAMMATORY BOWEL DISEASE
  7. ASACOL [Concomitant]
     Active Substance: MESALAMINE
     Indication: COLITIS ULCERATIVE
     Dosage: 2400 MG, UNK
     Route: 048
     Dates: end: 201807

REACTIONS (11)
  - Oropharyngeal pain [Unknown]
  - Pharyngeal ulceration [Recovering/Resolving]
  - Abdominal pain [Unknown]
  - Oesophageal ulcer [Recovered/Resolved]
  - Diarrhoea [Recovered/Resolved]
  - Thrombosis [Recovered/Resolved]
  - Eating disorder [Unknown]
  - Large intestinal ulcer [Recovered/Resolved]
  - Inflammatory bowel disease [Recovered/Resolved]
  - Aphthous ulcer [Recovered/Resolved]
  - Bronchial ulceration [Recovered/Resolved]

NARRATIVE: CASE EVENT DATE: 20180701
